FAERS Safety Report 10058521 (Version 1)
Quarter: 2014Q2

REPORT INFORMATION
  Report Type: Spontaneous
  Country: US (occurrence: US)
  Receive Date: 20140404
  Receipt Date: 20140404
  Transmission Date: 20141212
  Serious: No
  Sender: FDA-Public Use
  Company Number: US-PFIZER INC-2014092946

PATIENT
  Age: 35 Year
  Sex: Female
  Weight: 88.44 kg

DRUGS (3)
  1. ZITHROMAX [Suspect]
     Indication: NASOPHARYNGITIS
     Dosage: UNK
     Dates: start: 20140323, end: 20140325
  2. ZOLOFT [Interacting]
     Indication: ANXIETY
     Dosage: 50 MG, DAILY
  3. ZOLOFT [Interacting]
     Indication: DEPRESSION

REACTIONS (5)
  - Drug interaction [Unknown]
  - Hyperhidrosis [Recovering/Resolving]
  - Palpitations [Recovering/Resolving]
  - Dizziness [Recovering/Resolving]
  - Presyncope [Recovering/Resolving]
